FAERS Safety Report 21200772 (Version 1)
Quarter: 2022Q3

REPORT INFORMATION
  Report Type: Spontaneous
  Country: None (occurrence: US)
  Receive Date: 20220811
  Receipt Date: 20220811
  Transmission Date: 20221027
  Serious: Yes (Other)
  Sender: FDA-Public Use
  Company Number: US-Vero Biotech-2131720

PATIENT
  Age: 58 Year
  Sex: Male

DRUGS (2)
  1. GENOSYL [Suspect]
     Active Substance: NITRIC OXIDE
     Indication: Right ventricular failure
     Route: 055
     Dates: start: 20220721
  2. GENOSYL [Suspect]
     Active Substance: NITRIC OXIDE

REACTIONS (2)
  - Cardiopulmonary failure [Unknown]
  - Anxiety [Unknown]

NARRATIVE: CASE EVENT DATE: 20220729
